FAERS Safety Report 6958078-7 (Version None)
Quarter: 2010Q3

REPORT INFORMATION
  Report Type: 
  Country: None (occurrence: None)
  Receive Date: 20100831
  Receipt Date: 20100826
  Transmission Date: 20110219
  Serious: Yes (Hospitalization)
  Sender: FDA-Public Use
  Company Number: BR-BRISTOL-MYERS SQUIBB COMPANY-15222003

PATIENT
  Age: 46 Year
  Sex: Female

DRUGS (4)
  1. REYATAZ [Suspect]
     Indication: HIV INFECTION
     Route: 048
     Dates: start: 20070101, end: 20100729
  2. BIOVIR [Suspect]
     Indication: HIV INFECTION
     Dates: start: 20070101
  3. KALETRA [Suspect]
     Indication: HIV INFECTION
     Dates: start: 20070101
  4. RITONAVIR [Suspect]
     Indication: HIV INFECTION

REACTIONS (2)
  - NEPHROLITHIASIS [None]
  - SEPSIS [None]
